FAERS Safety Report 10367800 (Version 7)
Quarter: 2015Q1

REPORT INFORMATION
  Report Type: Report from Study
  Country: CN (occurrence: CN)
  Receive Date: 20140807
  Receipt Date: 20150126
  Transmission Date: 20150720
  Serious: Yes (Hospitalization, Other)
  Sender: FDA-Public Use
  Company Number: CN-BAYER-2014-116870

PATIENT
  Age: 82 Year
  Sex: Male
  Weight: 50 kg

DRUGS (14)
  1. RADIUM-223 DICHLORIDE [Suspect]
     Active Substance: RADIUM RA-223 DICHLORIDE
     Indication: PROSTATE CANCER STAGE IV
     Dosage: 2500 KBQ, ONCE
     Route: 042
     Dates: start: 20140712, end: 20140712
  2. WARFARIN [Concomitant]
     Active Substance: WARFARIN
     Indication: HEART DISEASE CONGENITAL
     Dosage: 1.25 MG, QD
     Route: 048
     Dates: start: 20121001, end: 20140818
  3. OMEPRAZOLE. [Concomitant]
     Active Substance: OMEPRAZOLE
     Indication: ABDOMINAL DISTENSION
     Dosage: 40 MG, QD
     Route: 042
     Dates: start: 20140730, end: 20140810
  4. HUMAN ALBUMIN [ALBUMIN HUMAN] [Concomitant]
     Indication: DECREASED APPETITE
     Dosage: 12.5 MG, QD
     Route: 042
     Dates: start: 20140730, end: 20140810
  5. FUROSEMIDE [FUROSEMIDE] [Concomitant]
     Indication: HEART DISEASE CONGENITAL
     Dosage: 20 MG, QD
     Route: 048
     Dates: start: 20121001, end: 20140818
  6. DIGOXIN [DIGOXIN] [Concomitant]
     Active Substance: DIGOXIN
     Indication: HEART DISEASE CONGENITAL
     Dosage: 0.0625MG DAILY
     Route: 048
     Dates: start: 20121001
  7. VITAMIN E [TOCOPHEROL] [Concomitant]
     Indication: DECREASED APPETITE
     Dosage: 4 ML, QD
     Route: 042
     Dates: start: 20140730, end: 20140810
  8. HUMAN ALBUMIN [ALBUMIN HUMAN] [Concomitant]
     Indication: ABDOMINAL DISTENSION
  9. RADIUM-223 DICHLORIDE [Suspect]
     Active Substance: RADIUM RA-223 DICHLORIDE
     Indication: METASTASES TO BONE
     Dosage: 2500 KBQ, ONCE
     Route: 042
     Dates: start: 20140807, end: 20140807
  10. L THYROXINE [Concomitant]
     Active Substance: LEVOTHYROXINE SODIUM
     Indication: HEART DISEASE CONGENITAL
     Dosage: 25 MG, QD
     Route: 048
     Dates: start: 20121001, end: 20140818
  11. VITAMIN E [TOCOPHEROL] [Concomitant]
     Indication: ABDOMINAL DISTENSION
  12. LISINOPRIL. [Concomitant]
     Active Substance: LISINOPRIL
     Indication: HEART DISEASE CONGENITAL
     Dosage: 5 MG, QD
     Route: 048
     Dates: start: 20121001
  13. ASPIRIN. [Concomitant]
     Active Substance: ASPIRIN
     Indication: HEART DISEASE CONGENITAL
     Dosage: 325 MG, QD
     Route: 048
     Dates: start: 20121001, end: 20130401
  14. VITAMIN E [TOCOPHEROL] [Concomitant]
     Indication: UPPER GASTROINTESTINAL HAEMORRHAGE

REACTIONS (4)
  - Decreased appetite [Recovered/Resolved]
  - Gastric cancer [Not Recovered/Not Resolved]
  - Abdominal distension [Recovered/Resolved]
  - Upper gastrointestinal haemorrhage [Recovered/Resolved]

NARRATIVE: CASE EVENT DATE: 20140730
